FAERS Safety Report 5847174-3 (Version None)
Quarter: 2008Q3

REPORT INFORMATION
  Report Type: 
  Country: None (occurrence: None)
  Receive Date: 20080815
  Receipt Date: 20080801
  Transmission Date: 20090109
  Serious: Yes (Hospitalization)
  Sender: FDA-Public Use
  Company Number: US-GENENTECH-266125

PATIENT

DRUGS (4)
  1. BEVACIZUMAB [Suspect]
     Indication: NON-SMALL CELL LUNG CANCER
     Dosage: 15 MG/KG, Q21D
     Route: 042
     Dates: start: 20070618
  2. TAXOTERE [Suspect]
     Indication: NON-SMALL CELL LUNG CANCER
     Dosage: 75 MG/M2, Q21D
     Route: 042
     Dates: start: 20070618
  3. DEXAMETHASONE TAB [Suspect]
     Indication: NON-SMALL CELL LUNG CANCER
     Dosage: 8 MG, BID
     Route: 048
     Dates: start: 20070618
  4. NEUPOGEN [Suspect]
     Indication: NON-SMALL CELL LUNG CANCER
     Dosage: 5 U/KG, Q21D
     Route: 058
     Dates: start: 20070619

REACTIONS (4)
  - DYSPNOEA [None]
  - HAEMOGLOBIN DECREASED [None]
  - HYPOXIA [None]
  - PNEUMONITIS [None]
